FAERS Safety Report 19006255 (Version 6)
Quarter: 2021Q2

REPORT INFORMATION
  Report Type: Spontaneous
  Country: US (occurrence: US)
  Receive Date: 20210315
  Receipt Date: 20210601
  Transmission Date: 20210717
  Serious: No
  Sender: FDA-Public Use
  Company Number: US-GLAXOSMITHKLINE-US2021AMR061193

PATIENT
  Sex: Female

DRUGS (4)
  1. ZEJULA [Suspect]
     Active Substance: NIRAPARIB
     Indication: OVARIAN CANCER
     Dosage: 100 MG, QD
     Dates: start: 20210303
  2. ZEJULA [Suspect]
     Active Substance: NIRAPARIB
     Dosage: 100 MG, QD
     Route: 048
  3. ZYRTEC [Suspect]
     Active Substance: CETIRIZINE HYDROCHLORIDE
     Indication: SINUS DISORDER
     Dosage: UNK
  4. ZEJULA [Suspect]
     Active Substance: NIRAPARIB
     Dosage: 100 MG, QD
     Route: 048

REACTIONS (28)
  - Taste disorder [Unknown]
  - Feeling abnormal [Recovering/Resolving]
  - Dyspepsia [Unknown]
  - Contusion [Unknown]
  - Stomatitis [Unknown]
  - Flatulence [Unknown]
  - Pain [Not Recovered/Not Resolved]
  - Oral pain [Unknown]
  - Nasal congestion [Unknown]
  - Diarrhoea [Unknown]
  - Nausea [Not Recovered/Not Resolved]
  - Sinus disorder [Not Recovered/Not Resolved]
  - Fatigue [Not Recovered/Not Resolved]
  - Sputum discoloured [Unknown]
  - Oropharyngeal pain [Unknown]
  - Sneezing [Not Recovered/Not Resolved]
  - Nail disorder [Unknown]
  - Off label use [Not Recovered/Not Resolved]
  - Cough [Not Recovered/Not Resolved]
  - Sleep disorder [Not Recovered/Not Resolved]
  - Productive cough [Unknown]
  - Multiple allergies [Unknown]
  - Movement disorder [Unknown]
  - Gastric disorder [Unknown]
  - Condition aggravated [Unknown]
  - Headache [Not Recovered/Not Resolved]
  - Rhinorrhoea [Unknown]
  - Drug ineffective [Unknown]
